FAERS Safety Report 4282018-5 (Version None)
Quarter: 2004Q1

REPORT INFORMATION
  Report Type: 
  Country: None (occurrence: None)
  Receive Date: 20040130
  Receipt Date: 20040126
  Transmission Date: 20041129
  Serious: Yes (Other)
  Sender: FDA-Public Use
  Company Number: US-BRISTOL-MYERS SQUIBB COMPANY-12487690

PATIENT
  Age: 51 Year
  Sex: Female
  Weight: 66 kg

DRUGS (4)
  1. CYTOXAN [Suspect]
     Indication: BREAST CANCER
     Route: 042
     Dates: start: 20031229
  2. ADRIAMYCIN PFS [Concomitant]
     Indication: BREAST CANCER
     Route: 042
     Dates: start: 20031229
  3. ZOFRAN [Concomitant]
  4. LORAZEPAM [Concomitant]

REACTIONS (9)
  - AMNESIA [None]
  - ASTHENIA [None]
  - EATING DISORDER [None]
  - GLOSSITIS [None]
  - HERPES SIMPLEX [None]
  - MALAISE [None]
  - NAUSEA [None]
  - PRURITUS [None]
  - SOMNOLENCE [None]
